FAERS Safety Report 18453958 (Version 1)
Quarter: 2020Q4

REPORT INFORMATION
  Report Type: Spontaneous
  Country: SE (occurrence: SE)
  Receive Date: 20201102
  Receipt Date: 20201102
  Transmission Date: 20210114
  Serious: Yes (Other)
  Sender: FDA-Public Use
  Company Number: SE-PFIZER INC-2020201064

PATIENT
  Age: 69 Year
  Sex: Female

DRUGS (1)
  1. OESTRING [Suspect]
     Active Substance: ESTRADIOL
     Dosage: UNK
     Route: 067
     Dates: start: 201911, end: 202003

REACTIONS (3)
  - Vaginal haemorrhage [Recovered/Resolved]
  - Vulvovaginal pain [Unknown]
  - Product complaint [Recovered/Resolved]

NARRATIVE: CASE EVENT DATE: 2020
